FAERS Safety Report 24081818 (Version 2)
Quarter: 2024Q3

REPORT INFORMATION
  Report Type: Spontaneous
  Country: JP (occurrence: JP)
  Receive Date: 20240712
  Receipt Date: 20240725
  Transmission Date: 20241016
  Serious: Yes (Hospitalization, Congenital Anomaly, Other)
  Sender: GLAXOSMITHKLINE
  Company Number: JP-GLAXOSMITHKLINE-JP2024JPN084547

PATIENT

DRUGS (2)
  1. VALTREX [Suspect]
     Active Substance: VALACYCLOVIR HYDROCHLORIDE
     Indication: Herpes zoster
     Dosage: UNK
     Route: 064
  2. VALTREX [Suspect]
     Active Substance: VALACYCLOVIR HYDROCHLORIDE
     Indication: Genital herpes

REACTIONS (11)
  - Foetal growth restriction [Unknown]
  - Foetal hypokinesia [Unknown]
  - Foetal distress syndrome [Unknown]
  - Foetal heart rate deceleration abnormality [Unknown]
  - Congenital syphilis [Unknown]
  - Disseminated intravascular coagulation [Unknown]
  - Premature baby [Unknown]
  - Low birth weight baby [Unknown]
  - Hepatosplenomegaly [Unknown]
  - Haemorrhagic diathesis [Unknown]
  - Foetal exposure during pregnancy [Unknown]
